FAERS Safety Report 9621503 (Version 2)
Quarter: 2013Q4

REPORT INFORMATION
  Report Type: Spontaneous
  Country: AU (occurrence: AU)
  Receive Date: 20131015
  Receipt Date: 20131022
  Transmission Date: 20140711
  Serious: Yes (Other)
  Sender: FDA-Public Use
  Company Number: AU-PFIZER INC-2013288182

PATIENT
  Age: 68 Year
  Sex: Female

DRUGS (1)
  1. AROMASIN [Suspect]
     Indication: BREAST CANCER METASTATIC
     Dosage: UNK
     Dates: start: 201307

REACTIONS (3)
  - Invasive lobular breast carcinoma [Unknown]
  - Haemorrhage subcutaneous [Not Recovered/Not Resolved]
  - Breast haemorrhage [Not Recovered/Not Resolved]
